FAERS Safety Report 6892003-2 (Version None)
Quarter: 2010Q3

REPORT INFORMATION
  Report Type: 
  Country: None (occurrence: None)
  Receive Date: 20100731
  Receipt Date: 20071214
  Transmission Date: 20110219
  Serious: Yes (Other)
  Sender: FDA-Public Use
  Company Number: US-PFIZER INC-2007106252

PATIENT
  Sex: Female
  Weight: 53.636 kg

DRUGS (8)
  1. NEURONTIN [Suspect]
     Indication: SLEEP DISORDER
  2. SONATA [Concomitant]
  3. ZOCOR [Concomitant]
  4. TAMOXIFEN CITRATE [Concomitant]
  5. ADDERALL 10 [Concomitant]
  6. ASPIRIN [Concomitant]
  7. ACEON [Concomitant]
  8. LUNESTA [Concomitant]

REACTIONS (1)
  - HYPERTENSION [None]
